FAERS Safety Report 6433760-9 (Version None)
Quarter: 2009Q4

REPORT INFORMATION
  Report Type: 
  Country: None (occurrence: None)
  Receive Date: 20091106
  Receipt Date: 20091106
  Transmission Date: 20100525
  Serious: Yes (Hospitalization)
  Sender: FDA-Public Use
  Company Number: None

PATIENT
  Age: 69 Year
  Sex: Male

DRUGS (1)
  1. PSEUDOEPHEDRINE HCL [Suspect]
     Dosage: 60 MG QID PO
     Route: 048
     Dates: start: 20090808, end: 20090810

REACTIONS (2)
  - HEART RATE DECREASED [None]
  - HEART RATE IRREGULAR [None]
